FAERS Safety Report 18997053 (Version 2)
Quarter: 2021Q2

REPORT INFORMATION
  Report Type: Report from Study
  Country: RU (occurrence: RU)
  Receive Date: 20210311
  Receipt Date: 20210407
  Transmission Date: 20210717
  Serious: Yes (Hospitalization)
  Sender: FDA-Public Use
  Company Number: RU-CELGENEUS-RUS-20210300915

PATIENT
  Age: 47 Year
  Sex: Male

DRUGS (9)
  1. LOSARTANI [Concomitant]
     Indication: HYPERTENSION
     Dosage: 50 MILLIGRAM
     Route: 048
     Dates: start: 20150417
  2. LEVEMIR [Concomitant]
     Active Substance: INSULIN DETEMIR
     Indication: TYPE 2 DIABETES MELLITUS
     Dosage: 40 MILLIGRAM
     Route: 058
     Dates: start: 20150417
  3. URSOSAN [Concomitant]
     Active Substance: URSODIOL
     Indication: GAMMA-GLUTAMYLTRANSFERASE INCREASED
  4. SULFASALAZINE. [Concomitant]
     Active Substance: SULFASALAZINE
     Indication: COLITIS ULCERATIVE
     Dosage: 3 GRAM
     Route: 048
     Dates: start: 20180726
  5. SORBIFER DURULES [FERROUS SULFATE] [Concomitant]
     Active Substance: FERROUS SULFATE
     Indication: ANAEMIA
     Dosage: 1140 MILLIGRAM
     Route: 048
     Dates: start: 20181218, end: 20190225
  6. HEPTRAL [Concomitant]
     Active Substance: ADEMETIONINE
     Indication: NON-ALCOHOLIC STEATOHEPATITIS
     Dosage: 800 MILLIGRAM
     Route: 048
     Dates: start: 20190506, end: 20190701
  7. OZANIMOD. [Suspect]
     Active Substance: OZANIMOD
     Indication: COLITIS ULCERATIVE
     Dosage: 1 MILLIGRAM
     Route: 048
     Dates: start: 20201222
  8. HEPTRAL [Concomitant]
     Active Substance: ADEMETIONINE
     Dosage: 1200 MILLIGRAM
     Route: 048
     Dates: start: 20200425, end: 20200625
  9. URSOSAN [Concomitant]
     Active Substance: URSODIOL
     Indication: NON-ALCOHOLIC STEATOHEPATITIS
     Dosage: 1000 MILLIGRAM
     Route: 048
     Dates: start: 20200713

REACTIONS (1)
  - COVID-19 pneumonia [Recovered/Resolved]

NARRATIVE: CASE EVENT DATE: 20210220
